FAERS Safety Report 7142666-1 (Version None)
Quarter: 2010Q4

REPORT INFORMATION
  Report Type: 
  Country: None (occurrence: None)
  Receive Date: 20101207
  Receipt Date: 20101203
  Transmission Date: 20110411
  Serious: No
  Sender: FDA-Public Use
  Company Number: US-B.I. PHARMACEUTICALS,INC./RIDGEFIELD-2010-BP-13739BP

PATIENT
  Sex: Female

DRUGS (16)
  1. SPIRIVA [Suspect]
     Indication: CHRONIC OBSTRUCTIVE PULMONARY DISEASE
     Dosage: 18 MCG
     Route: 055
     Dates: start: 20091201
  2. SPIRIVA [Suspect]
     Indication: ASTHMA
  3. DITROPAN [Suspect]
     Indication: BLADDER SPASM
     Route: 048
  4. DITROPAN [Suspect]
     Indication: INCONTINENCE
  5. BETAPACE [Concomitant]
     Indication: ATRIAL FIBRILLATION
     Route: 048
  6. PRILOSEC [Concomitant]
     Indication: GASTROOESOPHAGEAL REFLUX DISEASE
     Route: 048
  7. ISORDIL [Concomitant]
     Indication: CARDIAC DISORDER
     Route: 048
  8. LIPITOR [Concomitant]
     Indication: BLOOD CHOLESTEROL INCREASED
     Route: 048
  9. ZOLOFT [Concomitant]
     Indication: DEPRESSION
     Route: 048
  10. LEVOXYL [Concomitant]
     Indication: HYPOTHYROIDISM
     Route: 048
  11. MICARDIS [Concomitant]
     Indication: CARDIAC DISORDER
     Route: 048
  12. GLYBURIDE [Concomitant]
     Indication: DIABETES MELLITUS
     Route: 048
  13. ADVAIR [Concomitant]
     Indication: CHRONIC OBSTRUCTIVE PULMONARY DISEASE
     Route: 055
  14. ADVAIR [Concomitant]
     Indication: ASTHMA
  15. PROAIR HFA [Concomitant]
     Indication: CHRONIC OBSTRUCTIVE PULMONARY DISEASE
     Route: 055
  16. PROAIR HFA [Concomitant]
     Indication: ASTHMA

REACTIONS (2)
  - DRY EYE [None]
  - DRY MOUTH [None]
